FAERS Safety Report 23928948 (Version 1)
Quarter: 2024Q2

REPORT INFORMATION
  Report Type: Spontaneous
  Country: US (occurrence: US)
  Receive Date: 20240601
  Receipt Date: 20240601
  Transmission Date: 20240715
  Serious: No
  Sender: FDA-Public Use
  Company Number: US-RADIUS HEALTH INC.-2023US005638

PATIENT
  Sex: Male
  Weight: 144.67 kg

DRUGS (2)
  1. TYMLOS [Suspect]
     Active Substance: ABALOPARATIDE
     Indication: Illness
     Dosage: 80 MICROGRAM, QD
     Route: 058
  2. TYMLOS [Suspect]
     Active Substance: ABALOPARATIDE
     Indication: Senile osteoporosis

REACTIONS (5)
  - Urine odour abnormal [Unknown]
  - Hyperhidrosis [Unknown]
  - Urine abnormality [Unknown]
  - Loss of personal independence in daily activities [Unknown]
  - Dizziness [Unknown]
